FAERS Safety Report 20698159 (Version 16)
Quarter: 2025Q3

REPORT INFORMATION
  Report Type: Report from Study
  Country: US (occurrence: US)
  Receive Date: 20220412
  Receipt Date: 20250808
  Transmission Date: 20251020
  Serious: Yes (Hospitalization, Other)
  Sender: TAKEDA
  Company Number: US-TAKEDA-2021TUS056035

PATIENT
  Age: 75 Year
  Sex: Male
  Weight: 95 kg

DRUGS (38)
  1. HUMAN IMMUNOGLOBULIN G [Suspect]
     Active Substance: HUMAN IMMUNOGLOBULIN G
     Indication: Hypogammaglobulinaemia
     Dosage: 35 GRAM, Q4WEEKS
  2. HUMAN IMMUNOGLOBULIN G [Suspect]
     Active Substance: HUMAN IMMUNOGLOBULIN G
     Indication: Acquired ATTR amyloidosis
     Dosage: 35 GRAM, Q4WEEKS
  3. HUMAN IMMUNOGLOBULIN G [Suspect]
     Active Substance: HUMAN IMMUNOGLOBULIN G
     Indication: B-cell lymphoma
  4. PATISIRAN [Suspect]
     Active Substance: PATISIRAN
     Indication: Product used for unknown indication
  5. TRAZODONE [Suspect]
     Active Substance: TRAZODONE HYDROCHLORIDE
     Indication: Product used for unknown indication
  6. MELATONIN [Suspect]
     Active Substance: MELATONIN
     Indication: Product used for unknown indication
  7. ACETAMINOPHEN [Concomitant]
     Active Substance: ACETAMINOPHEN
  8. DIPHENHYDRAMINE [Concomitant]
     Active Substance: DIPHENHYDRAMINE
  9. LIDOCAINE [Concomitant]
     Active Substance: LIDOCAINE
  10. SODIUM CHLORIDE [Concomitant]
     Active Substance: SODIUM CHLORIDE
  11. EPINEPHRINE [Concomitant]
     Active Substance: EPINEPHRINE
  12. ELIQUIS [Concomitant]
     Active Substance: APIXABAN
  13. PREDNISONE [Concomitant]
     Active Substance: PREDNISONE
  14. SYNTHROID [Concomitant]
     Active Substance: LEVOTHYROXINE SODIUM
  15. DIPROLENE [Concomitant]
     Active Substance: BETAMETHASONE DIPROPIONATE
  16. METOPROLOL TARTRATE [Concomitant]
     Active Substance: METOPROLOL TARTRATE
  17. BENADRYL [Concomitant]
     Active Substance: DIPHENHYDRAMINE HYDROCHLORIDE
  18. VITAMIN A [Concomitant]
     Active Substance: VITAMIN A
  19. TORSEMIDE [Concomitant]
     Active Substance: TORSEMIDE
  20. TYLENOL [Concomitant]
     Active Substance: ACETAMINOPHEN
  21. AMIODARONE HYDROCHLORIDE [Concomitant]
     Active Substance: AMIODARONE HYDROCHLORIDE
  22. LIDODERM [Concomitant]
     Active Substance: LIDOCAINE
  23. ALBUTEROL SULFATE [Concomitant]
     Active Substance: ALBUTEROL SULFATE
  24. ONPATTRO [Concomitant]
     Active Substance: PATISIRAN SODIUM
  25. VYNDAQEL [Concomitant]
     Active Substance: TAFAMIDIS MEGLUMINE
  26. HIZENTRA [Concomitant]
     Active Substance: HUMAN IMMUNOGLOBULIN G
  27. VITAMIN D3 [Concomitant]
     Active Substance: CHOLECALCIFEROL
  28. FIBERCON [Concomitant]
     Active Substance: CALCIUM POLYCARBOPHIL
  29. MEDICAL FOOD [Concomitant]
     Active Substance: MEDICAL FOOD
  30. LEVOXYL [Concomitant]
     Active Substance: LEVOTHYROXINE SODIUM
  31. TYLENOL EXTRA STRENGTH [Concomitant]
     Active Substance: ACETAMINOPHEN
  32. ALBUTEROL SULFATE [Concomitant]
     Active Substance: ALBUTEROL SULFATE
  33. VITAMIN B [Concomitant]
     Active Substance: VITAMIN B
  34. DIPHENHYDRAMINE HYDROCHLORIDE [Concomitant]
     Active Substance: DIPHENHYDRAMINE HYDROCHLORIDE
  35. PRILOSEC OTC [Concomitant]
     Active Substance: OMEPRAZOLE MAGNESIUM
  36. KEVZARA [Concomitant]
     Active Substance: SARILUMAB
  37. EVENITY [Concomitant]
     Active Substance: ROMOSOZUMAB-AQQG
  38. AMVUTTRA [Concomitant]
     Active Substance: VUTRISIRAN

REACTIONS (27)
  - Systemic lupus erythematosus [Unknown]
  - Enterocolitis haemorrhagic [Unknown]
  - Clostridium difficile colitis [Unknown]
  - Post procedural infection [Unknown]
  - Urinary tract infection [Unknown]
  - Colitis [Unknown]
  - Compression fracture [Unknown]
  - Autoimmune disorder [Unknown]
  - Adrenal insufficiency [Unknown]
  - Immunosuppression [Unknown]
  - Spinal fracture [Unknown]
  - Bronchitis [Unknown]
  - COVID-19 [Unknown]
  - Product dose omission issue [Unknown]
  - Viral infection [Unknown]
  - Illness [Unknown]
  - Inappropriate schedule of product administration [Unknown]
  - Product distribution issue [Unknown]
  - Lethargy [Unknown]
  - Pain in extremity [Recovering/Resolving]
  - Asthenia [Unknown]
  - Flushing [Unknown]
  - Dyspnoea [Unknown]
  - Diarrhoea [Unknown]
  - Pyrexia [Unknown]
  - Arthralgia [Unknown]
  - Fatigue [Unknown]

NARRATIVE: CASE EVENT DATE: 20240501
